FAERS Safety Report 9319500 (Version 1)
Quarter: 2013Q2

REPORT INFORMATION
  Report Type: Spontaneous
  Country: US (occurrence: US)
  Receive Date: 20130530
  Receipt Date: 20130530
  Transmission Date: 20140414
  Serious: No
  Sender: FDA-Public Use
  Company Number: US-TEVA-406113USA

PATIENT
  Sex: Female
  Weight: 47.22 kg

DRUGS (3)
  1. QNASL [Suspect]
  2. ASTEPRO [Concomitant]
  3. SINGULAIR [Concomitant]

REACTIONS (2)
  - Throat irritation [Unknown]
  - Stomatitis [Unknown]
